FAERS Safety Report 16455209 (Version 1)
Quarter: 2019Q2

REPORT INFORMATION
  Report Type: Spontaneous
  Country: US (occurrence: US)
  Receive Date: 20190620
  Receipt Date: 20190620
  Transmission Date: 20190711
  Serious: No
  Sender: FDA-Public Use
  Company Number: US-GLENMARK PHARMACEUTICALS-2019GMK041478

PATIENT

DRUGS (1)
  1. ESTRADIOL VAGINAL INSERTS USP [Suspect]
     Active Substance: ESTRADIOL
     Indication: PRODUCT USED FOR UNKNOWN INDICATION
     Dosage: UNK, 3 TIMES A WEEK (START DATE: LATE MARCH OR EARLY APRIL OF 2019; STOP DATE: UNSPECIFIED)
     Route: 067
     Dates: start: 2019

REACTIONS (3)
  - No adverse event [Unknown]
  - Device issue [Unknown]
  - Drug dose omission by device [Unknown]
